FAERS Safety Report 10021244 (Version 1)
Quarter: 2014Q1

REPORT INFORMATION
  Report Type: Spontaneous
  Country: US (occurrence: None)
  Receive Date: 20140318
  Receipt Date: 20140318
  Transmission Date: 20141002
  Serious: Yes (Other)
  Sender: FDA-Public Use
  Company Number: None

PATIENT
  Age: 5 Year
  Sex: Female
  Weight: 19.5 kg

DRUGS (3)
  1. COUGH AND FEVER RELIEF SIMILASAN [Suspect]
     Indication: NASOPHARYNGITIS
     Dosage: 2.5 ML THREE TIMES DAILY TAKEN BY MOUTH
     Route: 048
  2. COUGH AND FEVER RELIEF SIMILASAN [Suspect]
     Indication: NASAL CONGESTION
     Dosage: 2.5 ML THREE TIMES DAILY TAKEN BY MOUTH
     Route: 048
  3. COUGH AND FEVER RELIEF SIMILASAN [Suspect]
     Dosage: 2.5 ML THREE TIMES DAILY TAKEN BY MOUTH
     Route: 048

REACTIONS (1)
  - Diarrhoea [None]
